FAERS Safety Report 6677630-X (Version None)
Quarter: 2010Q2

REPORT INFORMATION
  Report Type: 
  Country: None (occurrence: None)
  Receive Date: 20100412
  Receipt Date: 20100315
  Transmission Date: 20101027
  Serious: No
  Sender: FDA-Public Use
  Company Number: CA-ALEXION-A201000295

PATIENT
  Sex: Female

DRUGS (6)
  1. SOLIRIS [Suspect]
     Indication: PAROXYSMAL NOCTURNAL HAEMOGLOBINURIA
     Dosage: UNK
     Route: 042
     Dates: start: 20100308
  2. PREDNISOLONE [Concomitant]
     Indication: PAROXYSMAL NOCTURNAL HAEMOGLOBINURIA
     Dosage: 50 MG, PRN
     Route: 048
     Dates: start: 20050101
  3. YAZ [Concomitant]
     Indication: CONTRACEPTION
     Dosage: 1 QD
     Route: 048
     Dates: start: 20091201
  4. MORPHINE [Concomitant]
     Indication: ABDOMINAL PAIN
     Dosage: UNK
     Route: 042
  5. TYLENOL W/ CODEINE NO. 3 [Concomitant]
     Indication: ABDOMINAL PAIN
     Dosage: UNK
  6. DILAUDID [Concomitant]
     Indication: ABDOMINAL PAIN
     Dosage: UNK
     Route: 042

REACTIONS (2)
  - URINARY TRACT INFECTION [None]
  - VOMITING [None]
